FAERS Safety Report 17409619 (Version 1)
Quarter: 2020Q1

REPORT INFORMATION
  Report Type: Report from Study
  Country: IT (occurrence: IT)
  Receive Date: 20200212
  Receipt Date: 20200212
  Transmission Date: 20200409
  Serious: Yes (Hospitalization)
  Sender: FDA-Public Use
  Company Number: IT-TEVA-2020-IT-1184529

PATIENT
  Age: 83 Year
  Sex: Female

DRUGS (7)
  1. BISOPROLOL HEMIFUMARATE [Suspect]
     Active Substance: BISOPROLOL FUMARATE
     Indication: HYPERTENSION
     Dosage: 5 MG
     Route: 048
  2. LASIX [Suspect]
     Active Substance: FUROSEMIDE
     Indication: HYPERTENSION
     Route: 048
  3. VYTORIN 10MG/10 MG COMPRESSE [Concomitant]
  4. DUOPLAVIN 75 MG/100 MG FILM-COATED TABLETS [Concomitant]
  5. INSULIN [Concomitant]
     Active Substance: INSULIN NOS
  6. OLEVIA 1000 MG CAPSULE MOLLI [Concomitant]
  7. TELMISARTAN. [Suspect]
     Active Substance: TELMISARTAN
     Indication: HYPERTENSION
     Dosage: 40 MG
     Route: 048

REACTIONS (3)
  - Epistaxis [Recovering/Resolving]
  - Drug ineffective [Recovering/Resolving]
  - Blood pressure increased [Recovering/Resolving]

NARRATIVE: CASE EVENT DATE: 20200117
